FAERS Safety Report 7842834-7 (Version None)
Quarter: 2011Q4

REPORT INFORMATION
  Report Type: 
  Country: None (occurrence: None)
  Receive Date: 20111025
  Receipt Date: 20111020
  Transmission Date: 20120403
  Serious: Yes (Other)
  Sender: FDA-Public Use
  Company Number: US-PFIZER INC-2011254407

PATIENT
  Sex: Male
  Weight: 56 kg

DRUGS (4)
  1. PRILOSEC [Concomitant]
     Indication: GASTROOESOPHAGEAL REFLUX DISEASE
     Dosage: UNK
  2. SINGULAIR [Concomitant]
     Indication: HYPERSENSITIVITY
     Dosage: UNK
  3. NASONEX [Concomitant]
     Indication: RHINITIS ALLERGIC
     Dosage: UNK
  4. GENOTROPIN [Suspect]
     Indication: GROWTH HORMONE DEFICIENCY
     Dosage: 4 MG, 5X/WEEK
     Route: 058
     Dates: start: 19980101

REACTIONS (10)
  - ASTHMA [None]
  - NAUSEA [None]
  - DIZZINESS [None]
  - BLOOD CHOLESTEROL INCREASED [None]
  - PAIN IN EXTREMITY [None]
  - NECK PAIN [None]
  - HEADACHE [None]
  - MIGRAINE [None]
  - BONE DENSITY DECREASED [None]
  - PARAESTHESIA [None]
